FAERS Safety Report 18760910 (Version 2)
Quarter: 2021Q3

REPORT INFORMATION
  Report Type: Spontaneous
  Country: US (occurrence: US)
  Receive Date: 20210120
  Receipt Date: 20210810
  Transmission Date: 20211014
  Serious: No
  Sender: FDA-Public Use
  Company Number: US-HORIZON-2021HZN00440

PATIENT
  Sex: Female
  Weight: 43.5 kg

DRUGS (7)
  1. ESCITALOPRAM OXALATE. [Concomitant]
     Active Substance: ESCITALOPRAM OXALATE
     Dosage: 10 MG, UNK
  2. TEPEZZA [Suspect]
     Active Substance: TEPROTUMUMAB-TRBW
     Dosage: 870 MG, EVERY 3 WEEKS
     Route: 065
     Dates: start: 20201230
  3. TYLENOL [Concomitant]
     Active Substance: ACETAMINOPHEN
  4. IBANDRONATE SODIUM. [Concomitant]
     Active Substance: IBANDRONATE SODIUM
     Dosage: 150 MG, UNK
  5. METHIMAZOLE. [Concomitant]
     Active Substance: METHIMAZOLE
     Dosage: 10 MG, UNK
  6. TEPEZZA [Suspect]
     Active Substance: TEPROTUMUMAB-TRBW
     Indication: PRODUCT USED FOR UNKNOWN INDICATION
     Dosage: 500 MG, EVERY 3 WEEKS
     Route: 042
     Dates: start: 20201016
  7. VITAMIN K [Concomitant]
     Active Substance: PHYTONADIONE
     Dosage: 100 UG, UNK

REACTIONS (1)
  - Oropharyngeal pain [Unknown]
